FAERS Safety Report 9242281 (Version 2)
Quarter: 2013Q2

REPORT INFORMATION
  Report Type: Spontaneous
  Country: US (occurrence: US)
  Receive Date: 20130419
  Receipt Date: 20130425
  Transmission Date: 20140414
  Serious: No
  Sender: FDA-Public Use
  Company Number: US-PFIZER INC-2013122370

PATIENT
  Age: 6 Decade
  Sex: Male
  Weight: 90.7 kg

DRUGS (1)
  1. CELEBREX [Suspect]
     Indication: MYALGIA
     Dosage: 200 MG, 1X/DAY
     Dates: start: 201304, end: 201304

REACTIONS (3)
  - Rash [Recovered/Resolved]
  - Pruritus [Recovered/Resolved]
  - Scratch [Recovered/Resolved]
